FAERS Safety Report 13486164 (Version 1)
Quarter: 2017Q2

REPORT INFORMATION
  Report Type: Spontaneous
  Country: JP (occurrence: JP)
  Receive Date: 20170426
  Receipt Date: 20170426
  Transmission Date: 20170830
  Serious: Yes (Other)
  Sender: FDA-Public Use
  Company Number: JP-PFIZER INC-2017173673

PATIENT
  Age: 65 Year
  Sex: Female

DRUGS (3)
  1. HYDROCORTISONE. [Suspect]
     Active Substance: HYDROCORTISONE
     Indication: BASEDOW^S DISEASE
     Dosage: 500 MG, DAILY
  2. HYDROCORTISONE. [Suspect]
     Active Substance: HYDROCORTISONE
     Indication: ENDOCRINE OPHTHALMOPATHY
     Dosage: 500 MG, DAILY
  3. HYDROCORTISONE. [Suspect]
     Active Substance: HYDROCORTISONE
     Dosage: 500 MG, DAILY

REACTIONS (2)
  - Hypokalaemia [Unknown]
  - Diabetes mellitus [Unknown]
